FAERS Safety Report 10477449 (Version 4)
Quarter: 2014Q4

REPORT INFORMATION
  Report Type: Spontaneous
  Country: ES (occurrence: ES)
  Receive Date: 20140926
  Receipt Date: 20141016
  Transmission Date: 20150528
  Serious: Yes (Death, Other)
  Sender: FDA-Public Use
  Company Number: ES-AUROBINDO-AUR-APL-2014-01706

PATIENT
  Age: 57 Year
  Sex: Female

DRUGS (2)
  1. ANDREWS LIVER SALT [Suspect]
     Active Substance: ANHYDROUS CITRIC ACID\BICARBONATE ION\MAGNESIUM CATION
     Indication: SEIZURE
     Dosage: UNK UNK,UNK,
     Route: 065
  2. LAMOTRIGINE 100MG [Suspect]
     Active Substance: LAMOTRIGINE
     Indication: CONVULSION PROPHYLAXIS
     Dosage: 100 MG,TWO TIMES A DAY,
     Route: 065
     Dates: start: 2009

REACTIONS (5)
  - Circulatory collapse [Unknown]
  - Drug ineffective [Unknown]
  - Hyperaemia [Unknown]
  - Seizure [Unknown]
  - Therapeutic response unexpected [Unknown]
